FAERS Safety Report 17959186 (Version 2)
Quarter: 2020Q3

REPORT INFORMATION
  Report Type: Spontaneous
  Country: PL (occurrence: PL)
  Receive Date: 20200630
  Receipt Date: 20200727
  Transmission Date: 20201103
  Serious: Yes (Life-Threatening, Hospitalization)
  Sender: FDA-Public Use
  Company Number: PL-AUROBINDO-AUR-APL-2020-031165

PATIENT
  Age: 74 Year
  Sex: Male

DRUGS (1)
  1. METOPROLOL FILM COTED TABLETS 100MG [Suspect]
     Active Substance: METOPROLOL
     Indication: VENTRICULAR TACHYCARDIA
     Dosage: 200 MILLIGRAM, TOTAL (2 TABLETS OF METOPROLOL TARTRATE 100MG )
     Route: 048

REACTIONS (1)
  - Drug ineffective [Recovered/Resolved]
